FAERS Safety Report 7845800-0 (Version None)
Quarter: 2011Q4

REPORT INFORMATION
  Report Type: 
  Country: None (occurrence: None)
  Receive Date: 20111025
  Receipt Date: 20111012
  Transmission Date: 20120403
  Serious: Yes (Death, Hospitalization)
  Sender: FDA-Public Use
  Company Number: CA-MYLANLABS-2011S1021653

PATIENT
  Age: 61 Year
  Sex: Female
  Weight: 66 kg

DRUGS (27)
  1. TRAZODONE HYDROCHLORIDE [Interacting]
     Dosage: AT BEDTIME
     Route: 048
  2. VENLAFAXINE [Interacting]
     Route: 048
  3. LORAZEPAM [Concomitant]
     Dosage: AT BEDTIME
     Route: 048
  4. PREDNISONE [Concomitant]
     Route: 048
  5. CONJUGATED ESTROGENS [Concomitant]
     Dosage: 1.3MG DAILY
     Route: 048
  6. LOPERAMIDE HCL [Concomitant]
     Dosage: 2MG; 100 TABLETS/MONTH, AS NEEDED
     Route: 048
  7. ALBUTEROL [Concomitant]
     Dosage: 100 MICROG AS NEEDED
     Route: 048
  8. COTRIM [Concomitant]
     Dosage: TRIMETHOPRIM 160, SULFAMETHOXAZOLE 800 MICROG DAILY
     Route: 048
  9. HALOPERIDOL [Suspect]
     Indication: SCHIZOPHRENIA
     Dosage: AT BEDTIME
     Route: 048
  10. SUMATRIPTAN SUCCINATE [Concomitant]
     Dosage: 50MG AS NEEDED
     Route: 048
  11. LEVOTHYROXINE SODIUM [Concomitant]
     Dosage: 50 MICROG DAILY
     Route: 048
  12. OMEPRAZOLE [Concomitant]
     Route: 048
  13. DESIPRAMINE HCL [Concomitant]
     Route: 048
  14. CELECOXIB [Concomitant]
     Route: 048
  15. FLUCONAZOLE [Concomitant]
     Dosage: 150MG ON 5-6 OCCASIONS IN PAST 6 MONTHS
     Route: 048
  16. ALENDRONIC ACID [Concomitant]
     Route: 048
  17. ATORVASTATIN [Concomitant]
     Dosage: 10MG DAILY
     Route: 048
  18. HYDROCHLOROTHIAZIDE [Concomitant]
     Route: 048
  19. QUETIAPINE [Suspect]
     Route: 048
  20. RISPERIDONE [Suspect]
     Indication: SCHIZOPHRENIA
     Dosage: 2MG IN THE MORNING
     Route: 048
  21. HYDROXYZINE [Concomitant]
     Route: 048
  22. QUETIAPINE [Suspect]
     Indication: SCHIZOPHRENIA
     Dosage: AT BEDTIME
     Route: 048
  23. RISPERIDONE [Suspect]
     Dosage: 3MG AT BEDTIME
     Route: 048
  24. FUROSEMIDE [Concomitant]
     Dosage: 40MG DAILY
     Route: 048
  25. CYCLOBENZAPRINE [Concomitant]
     Dosage: 10MG AS NEEDED
     Route: 048
  26. BUDESONIDE [Concomitant]
     Dosage: 200 MICROG, 2 INHALATIONS DAILY
     Route: 055
  27. MOMETASONE FUROATE [Concomitant]
     Dosage: 0.5%, 2 SPRAYS TWICE DAILY

REACTIONS (6)
  - RESPIRATORY FAILURE [None]
  - DRUG INTERACTION [None]
  - HAEMODYNAMIC INSTABILITY [None]
  - NEUROLEPTIC MALIGNANT SYNDROME [None]
  - RENAL FAILURE [None]
  - DRUG LEVEL INCREASED [None]
